FAERS Safety Report 10038281 (Version 1)
Quarter: 2014Q1

REPORT INFORMATION
  Report Type: Spontaneous
  Country: US (occurrence: None)
  Receive Date: 20140306
  Receipt Date: 20140306
  Transmission Date: 20141002
  Serious: Yes (Other)
  Sender: FDA-Public Use
  Company Number: 163-21880-13054767

PATIENT
  Age: 56 Year
  Sex: Male

DRUGS (7)
  1. REVLIMID (LENALIDOMIDE) (25 MILLIGRAM, CAPSULES) [Suspect]
     Indication: PLASMA CELL MYELOMA
     Route: 048
     Dates: start: 201204
  2. CENTRUM (CENTRUM) (CHEWABLE TABLET) [Concomitant]
  3. DEXAMETHASONE (DEXAMETHASONE) (4 MILLIGRAM, [Concomitant]
  4. CVS FISIH OIL (FISH OIL) [Concomitant]
  5. LYRICA (PREGABALIN) [Concomitant]
  6. OXYCODONE HCL (OXYCODONE HYDROCHLORIDE) [Concomitant]
  7. MULTIVITAMINS (MULTIVITAMINS) [Concomitant]

REACTIONS (2)
  - Alopecia [None]
  - Dry skin [None]
